FAERS Safety Report 6117259-5 (Version None)
Quarter: 2009Q1

REPORT INFORMATION
  Report Type: 
  Country: None (occurrence: None)
  Receive Date: 20090314
  Receipt Date: 20090112
  Transmission Date: 20090719
  Serious: No
  Sender: FDA-Public Use
  Company Number: US-ABBOTT-09P-163-0497129-00

PATIENT
  Sex: Male
  Weight: 72.64 kg

DRUGS (2)
  1. HUMIRA [Suspect]
     Indication: PSORIASIS
     Dates: start: 20081031
  2. CLINDAMYCIN HCL [Suspect]
     Indication: ENDODONTIC PROCEDURE
     Dates: start: 20081230

REACTIONS (2)
  - DIARRHOEA [None]
  - ENDODONTIC PROCEDURE [None]
